FAERS Safety Report 25613761 (Version 1)
Quarter: 2025Q3

REPORT INFORMATION
  Report Type: Spontaneous
  Country: GB (occurrence: GB)
  Receive Date: 20250728
  Receipt Date: 20250728
  Transmission Date: 20251021
  Serious: Yes (Other)
  Sender: MYLAN
  Company Number: GB-MHRA-EMIS-2939-ba526fcc-f271-4571-89c8-3c2fe82667df

PATIENT
  Age: 87 Year
  Sex: Male
  Weight: 78 kg

DRUGS (5)
  1. FINASTERIDE [Suspect]
     Active Substance: FINASTERIDE
     Indication: Product used for unknown indication
     Dosage: 1 DOSAGE FORM, QD
     Dates: start: 20240524, end: 20250422
  2. ATORVASTATIN [Concomitant]
     Active Substance: ATORVASTATIN
     Dosage: 28 MILLIGRAM QD (20MG DAILY)
  3. TAMSULOSIN [Concomitant]
     Active Substance: TAMSULOSIN
     Dosage: 28 MICROGRAM, QD (400MCH DAILY)
  4. BENDROFLUMETHIAZIDE [Concomitant]
     Active Substance: BENDROFLUMETHIAZIDE
     Dosage: 2.5 MILLIGRAM, QD (2.5MG DAILY)
  5. SPIKEVAX [Concomitant]
     Active Substance: CX-046684
     Dates: start: 20250402, end: 20250402

REACTIONS (3)
  - Mood swings [Unknown]
  - Depressed mood [Unknown]
  - Depression [Unknown]
